FAERS Safety Report 15316355 (Version 1)
Quarter: 2018Q3

REPORT INFORMATION
  Report Type: Spontaneous
  Country: US (occurrence: US)
  Receive Date: 20180824
  Receipt Date: 20180824
  Transmission Date: 20181010
  Serious: No
  Sender: FDA-Public Use
  Company Number: US-SHIRE-US201832616

PATIENT
  Age: 59 Year
  Sex: Female

DRUGS (1)
  1. GATTEX [Suspect]
     Active Substance: TEDUGLUTIDE\WATER
     Indication: SHORT-BOWEL SYNDROME
     Dosage: 0.2750 1X/DAY:QD
     Route: 065
     Dates: start: 20150915

REACTIONS (1)
  - Duodenal polyp [Unknown]

NARRATIVE: CASE EVENT DATE: 20180714
